FAERS Safety Report 25234842 (Version 1)
Quarter: 2025Q2

REPORT INFORMATION
  Report Type: Spontaneous
  Country: US (occurrence: None)
  Receive Date: 20250423
  Receipt Date: 20250423
  Transmission Date: 20250716
  Serious: Yes (Life-Threatening, Hospitalization)
  Sender: FDA-CTU
  Company Number: None

PATIENT
  Age: 80 Year
  Sex: Male
  Weight: 82.8 kg

DRUGS (7)
  1. REPATHA [Suspect]
     Active Substance: EVOLOCUMAB
     Indication: Hypercholesterolaemia
     Route: 058
     Dates: start: 20241218
  2. CARVEDILOL [Concomitant]
     Active Substance: CARVEDILOL
     Dates: start: 20210512
  3. LEVOTHYROXINE [Concomitant]
     Active Substance: LEVOTHYROXINE
     Dates: start: 20200519
  4. LOSARTAN [Concomitant]
     Active Substance: LOSARTAN
     Dates: start: 20160719
  5. OMEPRAZOLE [Concomitant]
     Active Substance: OMEPRAZOLE
     Dates: start: 20200527
  6. TAMSULOSIN [Concomitant]
     Active Substance: TAMSULOSIN
     Dates: start: 20220712
  7. ASPIRIN [Concomitant]
     Active Substance: ASPIRIN
     Dates: start: 20210628

REACTIONS (3)
  - Abdominal adhesions [None]
  - Intestinal strangulation [None]
  - Gastrointestinal necrosis [None]

NARRATIVE: CASE EVENT DATE: 20250412
